FAERS Safety Report 21383255 (Version 1)
Quarter: 2022Q3

REPORT INFORMATION
  Report Type: Spontaneous
  Country: DE (occurrence: DE)
  Receive Date: 20220927
  Receipt Date: 20220927
  Transmission Date: 20221027
  Serious: Yes (Hospitalization, Other)
  Sender: FDA-Public Use
  Company Number: None

PATIENT
  Age: 86 Year
  Sex: Male
  Weight: 76 kg

DRUGS (10)
  1. RITUXIMAB [Suspect]
     Active Substance: RITUXIMAB
     Dosage: 15062021
  2. VINCRISTINE [Suspect]
     Active Substance: VINCRISTINE
     Dosage: 15062021
  3. CYCLOPHOSPHAMIDE [Suspect]
     Active Substance: CYCLOPHOSPHAMIDE
     Dosage: 15062021
  4. DOXORUBICIN [Suspect]
     Active Substance: DOXORUBICIN
     Dosage: 15062021
  5. PREDNISOLONE [Suspect]
     Active Substance: PREDNISOLONE
     Dosage: 15062021
  6. AMPHOTERICIN B [Concomitant]
     Active Substance: AMPHOTERICIN B
     Dosage: 1-1-1-1
  7. PANTOPRAZOLE [Concomitant]
     Active Substance: PANTOPRAZOLE
     Dosage: 40 MG, SCHEMA
  8. METAMIZOLE [Concomitant]
     Active Substance: METAMIZOLE
     Dosage: 500 MG, AS NEEDED
  9. MAGNESIUM [Concomitant]
     Active Substance: MAGNESIUM
     Dosage: 1-0-1-0
  10. SULFAMETHOXAZOLE\TRIMETHOPRIM [Concomitant]
     Active Substance: SULFAMETHOXAZOLE\TRIMETHOPRIM
     Dosage: 800/160 MG, 1-0-0-0

REACTIONS (10)
  - Headache [Unknown]
  - General physical health deterioration [Unknown]
  - Fall [Unknown]
  - Pyrexia [Unknown]
  - Dizziness [Unknown]
  - Nausea [Unknown]
  - Condition aggravated [Unknown]
  - Tachypnoea [Unknown]
  - Anaemia [Unknown]
  - Leukopenia [Unknown]
